FAERS Safety Report 11839302 (Version 2)
Quarter: 2015Q4

REPORT INFORMATION
  Report Type: Spontaneous
  Country: US (occurrence: US)
  Receive Date: 20151216
  Receipt Date: 20151216
  Transmission Date: 20160305
  Serious: Yes (Other)
  Sender: FDA-Public Use
  Company Number: US-HOSPIRA-2588445

PATIENT
  Age: 53 Year
  Sex: Male
  Weight: 77.56 kg

DRUGS (4)
  1. MEROPENEM. [Suspect]
     Active Substance: MEROPENEM
     Indication: ABDOMINAL ABSCESS
     Dosage: UNKNOWN
     Route: 042
     Dates: start: 20140902, end: 20140923
  2. MEROPENEM. [Suspect]
     Active Substance: MEROPENEM
     Indication: ABDOMINAL ABSCESS
     Dosage: UNKNOWN
     Route: 042
     Dates: start: 20140928, end: 20140930
  3. VANCOMYCIN HYDROCHLORIDE. [Suspect]
     Active Substance: VANCOMYCIN HYDROCHLORIDE
     Indication: ABDOMINAL ABSCESS
     Dosage: UNKNOWN
     Route: 042
     Dates: start: 20140902, end: 20140923
  4. VANCOMYCIN HYDROCHLORIDE. [Suspect]
     Active Substance: VANCOMYCIN HYDROCHLORIDE
     Indication: ABDOMINAL ABSCESS
     Dosage: UNKNOWN
     Route: 042
     Dates: start: 20140928, end: 20140930

REACTIONS (4)
  - Pyrexia [Recovered/Resolved]
  - Poor quality drug administered [Recovering/Resolving]
  - Product quality issue [Recovering/Resolving]
  - Pruritus generalised [Recovering/Resolving]

NARRATIVE: CASE EVENT DATE: 20140902
